FAERS Safety Report 9267740 (Version 1)
Quarter: 2013Q2

REPORT INFORMATION
  Report Type: Spontaneous
  Country: GB (occurrence: GB)
  Receive Date: 20130502
  Receipt Date: 20130502
  Transmission Date: 20140414
  Serious: Yes (Other)
  Sender: FDA-Public Use
  Company Number: GB-BAXTER-2013BAX016490

PATIENT
  Sex: Male

DRUGS (4)
  1. CYCLOPHOSPHAMIDE INJECTION 1G [Suspect]
     Indication: BONE MARROW CONDITIONING REGIMEN
     Route: 065
  2. BUSULFAN [Suspect]
     Indication: BONE MARROW CONDITIONING REGIMEN
     Route: 065
  3. PREDNISOLONE [Concomitant]
     Indication: PROPHYLAXIS
     Route: 065
  4. CYCLOSPORIN A [Concomitant]
     Indication: PROPHYLAXIS
     Route: 065

REACTIONS (2)
  - Neutropenic sepsis [Recovered/Resolved]
  - Cardiac failure [Recovered/Resolved]
